APPROVED DRUG PRODUCT: CEFAZOLIN SODIUM
Active Ingredient: CEFAZOLIN SODIUM
Strength: EQ 500MG BASE/VIAL
Dosage Form/Route: INJECTABLE;INJECTION
Application: A062688 | Product #002
Applicant: ABRAXIS PHARMACEUTICAL PRODUCTS
Approved: Nov 17, 1986 | RLD: No | RS: No | Type: DISCN